FAERS Safety Report 15035667 (Version 4)
Quarter: 2021Q2

REPORT INFORMATION
  Report Type: Report from Study
  Country: US (occurrence: US)
  Receive Date: 20180620
  Receipt Date: 20210414
  Transmission Date: 20210716
  Serious: Yes (Hospitalization, Other)
  Sender: FDA-Public Use
  Company Number: US-JAZZ-2018-US-009719

PATIENT
  Sex: Female

DRUGS (5)
  1. ZANAFLEX [Suspect]
     Active Substance: TIZANIDINE HYDROCHLORIDE
     Indication: HYPERSENSITIVITY
     Route: 065
  2. XYREM [Suspect]
     Active Substance: SODIUM OXYBATE
     Dosage: 4.5 GRAM, BID
     Route: 048
     Dates: start: 201806
  3. XYREM [Suspect]
     Active Substance: SODIUM OXYBATE
     Indication: CIRCADIAN RHYTHM SLEEP DISORDER
     Dosage: 2.25 GRAM, BID
     Route: 048
     Dates: start: 201805, end: 201805
  4. XYREM [Suspect]
     Active Substance: SODIUM OXYBATE
     Dosage: DOSE ADJUSTMENT
     Route: 048
     Dates: start: 201805, end: 201806
  5. CLONIDINE. [Suspect]
     Active Substance: CLONIDINE
     Indication: HYPERSENSITIVITY
     Route: 065

REACTIONS (5)
  - Migraine [Unknown]
  - Stomatitis [Unknown]
  - Bradycardia [Recovered/Resolved]
  - Off label use [Unknown]
  - Hiatus hernia [Unknown]
